FAERS Safety Report 15706594 (Version 1)
Quarter: 2018Q4

REPORT INFORMATION
  Report Type: Spontaneous
  Country: DK (occurrence: DK)
  Receive Date: 20181210
  Receipt Date: 20181210
  Transmission Date: 20190205
  Serious: Yes (Other)
  Sender: FDA-Public Use
  Company Number: PHHY2018DK177986

PATIENT
  Age: 75 Year
  Sex: Male
  Weight: 80 kg

DRUGS (2)
  1. ATORVASTATIN [Concomitant]
     Active Substance: ATORVASTATIN
     Indication: HYPERCHOLESTEROLAEMIA
     Dosage: 40 MG, QD
     Route: 048
     Dates: start: 20180830
  2. HJERDYL [Suspect]
     Active Substance: ASPIRIN
     Indication: THROMBOSIS PROPHYLAXIS
     Dosage: 150 MG, QD
     Route: 048
     Dates: start: 20181017

REACTIONS (3)
  - Suffocation feeling [Recovered/Resolved]
  - Cough [Recovered/Resolved]
  - Tracheal obstruction [Recovered/Resolved]

NARRATIVE: CASE EVENT DATE: 20181020
